FAERS Safety Report 6453482-8 (Version None)
Quarter: 2009Q4

REPORT INFORMATION
  Report Type: 
  Country: None (occurrence: None)
  Receive Date: 20091124
  Receipt Date: 20091116
  Transmission Date: 20100525
  Serious: Yes (Hospitalization)
  Sender: FDA-Public Use
  Company Number: US-JNJFOC-20091105414

PATIENT
  Sex: Female
  Weight: 79.38 kg

DRUGS (5)
  1. DURAGESIC-100 [Suspect]
     Indication: PANCREATITIS
     Route: 062
  2. REGLAN [Concomitant]
     Indication: GASTROOESOPHAGEAL REFLUX DISEASE
     Dosage: AS NEEDED
     Route: 048
  3. ACIPHEX [Concomitant]
     Indication: GASTRIC DISORDER
     Route: 048
  4. POTASSIUM CHLORIDE [Concomitant]
     Indication: SUPPLEMENTATION THERAPY
     Route: 048
  5. XANAX XR [Concomitant]
     Indication: PANIC ATTACK
     Route: 065

REACTIONS (2)
  - INCORRECT DRUG ADMINISTRATION DURATION [None]
  - PANCREATITIS [None]
